FAERS Safety Report 9746613 (Version 2)
Quarter: 2013Q4

REPORT INFORMATION
  Report Type: Spontaneous
  Country: US (occurrence: US)
  Receive Date: 20131211
  Receipt Date: 20131211
  Transmission Date: 20140711
  Serious: Yes (Disabling)
  Sender: FDA-Public Use
  Company Number: US-MYLANLABS-2013S1025655

PATIENT
  Sex: Female
  Weight: 63.5 kg

DRUGS (3)
  1. AMNESTEEM CAPSULES [Suspect]
     Indication: ACNE
     Route: 048
     Dates: start: 201305, end: 201310
  2. YAZ [Concomitant]
     Dates: start: 20130404
  3. CLINDAMYCIN [Concomitant]
     Dosage: CLINDAMYCIN BENZOYL PEROXIDE 1%/5%
     Route: 061

REACTIONS (5)
  - Arteriovenous malformation [Not Recovered/Not Resolved]
  - Foot amputation [Not Recovered/Not Resolved]
  - Headache [Not Recovered/Not Resolved]
  - Lip dry [Not Recovered/Not Resolved]
  - Nasal dryness [Not Recovered/Not Resolved]
